FAERS Safety Report 8378048-4 (Version None)
Quarter: 2012Q2

REPORT INFORMATION
  Report Type: 
  Country: None (occurrence: None)
  Receive Date: 20120522
  Receipt Date: 20120509
  Transmission Date: 20120825
  Serious: Yes (Hospitalization)
  Sender: FDA-Public Use
  Company Number: GB-MYLANLABS-2012S1009928

PATIENT
  Age: 58 Year
  Sex: Female

DRUGS (2)
  1. WARFARIN SODIUM [Interacting]
     Route: 065
  2. CLARITHROMYCIN [Suspect]
     Route: 065

REACTIONS (2)
  - CONTUSION [None]
  - DRUG INTERACTION [None]
